FAERS Safety Report 7703062-9 (Version None)
Quarter: 2011Q3

REPORT INFORMATION
  Report Type: 
  Country: None (occurrence: None)
  Receive Date: 20110823
  Receipt Date: 20110810
  Transmission Date: 20111222
  Serious: Yes (Hospitalization)
  Sender: FDA-Public Use
  Company Number: DE-UCBSA-038994

PATIENT
  Age: 62 Year
  Sex: Male

DRUGS (4)
  1. TEGRETOL [Concomitant]
     Dosage: DAILY DOSE: 1000 MG
  2. VIMPAT [Suspect]
     Indication: EPILEPSY
     Dosage: 100-0-100 (UNITS UNSPECIFIED)
     Dates: start: 20110601, end: 20110101
  3. VALPROIC ACID [Concomitant]
     Dosage: DAILY DOSE: 2500 MG
     Dates: end: 20110101
  4. LAMICTAL [Concomitant]
     Dosage: DAILY DOSE:400 MG

REACTIONS (1)
  - PARKINSON'S DISEASE [None]
